FAERS Safety Report 13230231 (Version 5)
Quarter: 2017Q2

REPORT INFORMATION
  Report Type: Report from Study
  Country: DE (occurrence: DE)
  Receive Date: 20170214
  Receipt Date: 20170630
  Transmission Date: 20170830
  Serious: Yes (Hospitalization)
  Sender: FDA-Public Use
  Company Number: PHHY2016DE120941

PATIENT
  Sex: Female
  Weight: 70 kg

DRUGS (13)
  1. VOTRIENT [Suspect]
     Active Substance: PAZOPANIB HYDROCHLORIDE
     Indication: METASTATIC RENAL CELL CARCINOMA
     Dosage: 800 MG, QD
     Route: 048
     Dates: start: 20160824, end: 20160827
  2. VOTRIENT [Suspect]
     Active Substance: PAZOPANIB HYDROCHLORIDE
     Dosage: 600 MG, QD
     Route: 048
     Dates: start: 20160921, end: 20160928
  3. VOTRIENT [Suspect]
     Active Substance: PAZOPANIB HYDROCHLORIDE
     Dosage: 400 MG, QD
     Route: 048
     Dates: start: 20170120, end: 20170531
  4. CARVEDILOL-RATIOPHARM [Concomitant]
     Indication: HYPERTENSION
     Dosage: 25 MG, BID
     Route: 048
     Dates: start: 20160929
  5. VOTRIENT [Suspect]
     Active Substance: PAZOPANIB HYDROCHLORIDE
     Dosage: 600 MG, QD
     Route: 048
     Dates: start: 20161005, end: 20161221
  6. IRBESARTAN RATIOPHARM [Concomitant]
     Indication: HYPERTENSION
     Dosage: 150 MG, BID (TWICE DAILY)
     Route: 048
  7. L THYROXIN HENNING [Concomitant]
     Active Substance: LEVOTHYROXINE SODIUM
     Indication: HYPOTHYROIDISM
     Dosage: 100 UG, QD
     Route: 048
  8. VOTRIENT [Suspect]
     Active Substance: PAZOPANIB HYDROCHLORIDE
     Dosage: 400 MG, QD
     Route: 048
     Dates: start: 20160907, end: 20160920
  9. MOXONIDIN-RATIOPHARM [Concomitant]
     Indication: HYPERTENSION
     Dosage: 0.3 MG, BID (TWICE A DAILY)
     Route: 048
     Dates: start: 20160929
  10. DORZOLAMID RATIOPHARM [Concomitant]
     Indication: GLAUCOMA
     Dosage: 20 MG, BID (TWICE DAILY)
     Route: 061
  11. VOTRIENT [Suspect]
     Active Substance: PAZOPANIB HYDROCHLORIDE
     Dosage: 400 MG, QD
     Route: 048
     Dates: start: 20161222, end: 20170110
  12. VOTRIENT [Suspect]
     Active Substance: PAZOPANIB HYDROCHLORIDE
     Dosage: 400 MG, QD
     Route: 048
     Dates: start: 20170605, end: 20170623
  13. LERCANIDIPINE [Concomitant]
     Active Substance: LERCANIDIPINE
     Indication: HYPERTENSION
     Dosage: 20 MG, QD
     Route: 048
     Dates: start: 20160929

REACTIONS (11)
  - Hypertensive crisis [Recovered/Resolved]
  - Urosepsis [Recovered/Resolved]
  - Inflammation [Recovered/Resolved]
  - Supraventricular tachycardia [Recovered/Resolved]
  - Ventricular extrasystoles [Unknown]
  - Atrial fibrillation [Recovered/Resolved]
  - Palpitations [Recovered/Resolved]
  - Extrasystoles [Recovered/Resolved]
  - Supraventricular extrasystoles [Recovered/Resolved]
  - Leukocytosis [Recovered/Resolved]
  - Cardiac disorder [Unknown]

NARRATIVE: CASE EVENT DATE: 20160828
